FAERS Safety Report 15327341 (Version 8)
Quarter: 2020Q4

REPORT INFORMATION
  Report Type: Report from Study
  Country: IT (occurrence: IT)
  Receive Date: 20180828
  Receipt Date: 20201014
  Transmission Date: 20210113
  Serious: Yes (Death, Other)
  Sender: FDA-Public Use
  Company Number: IT-EXELIXIS-XL18418015495

PATIENT
  Age: 69 Year
  Sex: Male
  Weight: 59 kg

DRUGS (10)
  1. PANTOPRAZOLE [Concomitant]
     Active Substance: PANTOPRAZOLE
  2. DIBASE [Concomitant]
     Active Substance: CHOLECALCIFEROL
  3. BLINDED XL184 [Suspect]
     Active Substance: CABOZANTINIB
     Dosage: 140 OR 60 MG, QD
     Route: 048
     Dates: start: 20180312
  4. BLINDED XL184 [Suspect]
     Active Substance: CABOZANTINIB
     Dosage: 60 OR 20 MG, QD
     Route: 048
  5. LOPERAMIDE [Concomitant]
     Active Substance: LOPERAMIDE
  6. EUTIROX [Concomitant]
     Active Substance: LEVOTHYROXINE SODIUM
  7. ENTEROLACTIS [Concomitant]
  8. BLINDED XL184 [Suspect]
     Active Substance: CABOZANTINIB
     Dosage: 60 OR 20 MG, QD
     Route: 048
  9. TACHIPIRINA [Concomitant]
     Active Substance: ACETAMINOPHEN
  10. BLINDED XL184 [Suspect]
     Active Substance: CABOZANTINIB
     Dosage: 140 OR 60 MG, QD
     Route: 048
     Dates: start: 20180312

REACTIONS (2)
  - Peritonitis [Fatal]
  - Large intestine perforation [Not Recovered/Not Resolved]

NARRATIVE: CASE EVENT DATE: 20180815
